FAERS Safety Report 12996439 (Version 2)
Quarter: 2017Q1

REPORT INFORMATION
  Report Type: Spontaneous
  Country: US (occurrence: US)
  Receive Date: 20161204
  Receipt Date: 20170123
  Transmission Date: 20170428
  Serious: No
  Sender: FDA-Public Use
  Company Number: US-ASTRAZENECA-2016SF18320

PATIENT
  Age: 31700 Day
  Sex: Female
  Weight: 69.9 kg

DRUGS (5)
  1. THYROID MEDICINE [Concomitant]
     Active Substance: UNSPECIFIED INGREDIENT
     Indication: THYROID DISORDER
  2. PULMICORT TURBUHALER [Suspect]
     Active Substance: BUDESONIDE
     Indication: ASTHMA
     Route: 055
     Dates: start: 20161103
  3. XOPENEX [Concomitant]
     Active Substance: LEVALBUTEROL HYDROCHLORIDE
     Indication: PROPHYLAXIS
     Route: 055
  4. BLOOD PRESSURE MEDICINE [Concomitant]
     Active Substance: UNSPECIFIED INGREDIENT
     Indication: BLOOD PRESSURE ABNORMAL
  5. QVAR INHALER [Concomitant]
     Route: 055

REACTIONS (10)
  - Musculoskeletal pain [Unknown]
  - Palpitations [Unknown]
  - Asthenia [Unknown]
  - Drug dose omission [Unknown]
  - Pneumonia [Unknown]
  - Productive cough [Unknown]
  - Neck pain [Unknown]
  - Malaise [Unknown]
  - Device malfunction [Unknown]
  - Cough [Unknown]

NARRATIVE: CASE EVENT DATE: 20161106
